FAERS Safety Report 13675852 (Version 2)
Quarter: 2017Q3

REPORT INFORMATION
  Report Type: Report from Study
  Country: US (occurrence: BR)
  Receive Date: 20170621
  Receipt Date: 20170901
  Transmission Date: 20171127
  Serious: Yes (Death, Hospitalization, Other)
  Sender: FDA-Public Use
  Company Number: US-SUNOVION-2017SUN002565

PATIENT
  Sex: Male

DRUGS (3)
  1. CAPTOPRIL. [Concomitant]
     Active Substance: CAPTOPRIL
  2. INSULIN [Concomitant]
     Active Substance: INSULIN NOS
  3. INDACATEROL AND GLYCOPYRROLATE [Suspect]
     Active Substance: GLYCOPYRROLATE\INDACATEROL MALEATE
     Indication: LUNG DISORDER
     Dosage: UNK
     Route: 065

REACTIONS (6)
  - Pulmonary oedema [Fatal]
  - Choking [Unknown]
  - Pharyngeal neoplasm [Unknown]
  - Nosocomial infection [Fatal]
  - Asthenia [Fatal]
  - Product use in unapproved indication [Unknown]
